FAERS Safety Report 15346683 (Version 1)
Quarter: 2018Q4

REPORT INFORMATION
  Report Type: Spontaneous
  Country: US (occurrence: US)
  Receive Date: 20180904
  Receipt Date: 20180904
  Transmission Date: 20190204
  Serious: No
  Sender: FDA-Public Use
  Company Number: US-TAIHO ONCOLOGY  INC-EU-2018-01286

PATIENT
  Age: 49 Year
  Sex: Male
  Weight: 66.28 kg

DRUGS (2)
  1. LONSURF [Suspect]
     Active Substance: TIPIRACIL HYDROCHLORIDE\TRIFLURIDINE
     Indication: COLON CANCER
     Dosage: DOSAGE AND FREQUENCY UNKNOWN.  CYCLE 2 STARTED ON 25JUN2018
     Route: 048
     Dates: start: 2018, end: 20180709
  2. COREG [Concomitant]
     Active Substance: CARVEDILOL
     Dosage: NI

REACTIONS (3)
  - Haematochezia [Not Recovered/Not Resolved]
  - Abdominal pain [Not Recovered/Not Resolved]
  - Decreased appetite [Not Recovered/Not Resolved]

NARRATIVE: CASE EVENT DATE: 201806
